FAERS Safety Report 12181426 (Version 1)
Quarter: 2016Q1

REPORT INFORMATION
  Report Type: Report from Study
  Country: US (occurrence: US)
  Receive Date: 20160315
  Receipt Date: 20160315
  Transmission Date: 20160526
  Serious: Yes (Hospitalization)
  Sender: FDA-Public Use
  Company Number: US-BIOGEN-2014BI072336

PATIENT
  Age: 68 Year
  Sex: Female

DRUGS (2)
  1. AVONEX [Suspect]
     Active Substance: INTERFERON BETA-1A
     Route: 030
     Dates: start: 20120215
  2. AVONEX [Suspect]
     Active Substance: INTERFERON BETA-1A
     Indication: MULTIPLE SCLEROSIS
     Route: 030
     Dates: start: 19980423, end: 20111001

REACTIONS (5)
  - Hip fracture [Unknown]
  - Staphylococcal infection [Not Recovered/Not Resolved]
  - Malaise [Unknown]
  - Lower extremity mass [Unknown]
  - Procedural complication [Unknown]

NARRATIVE: CASE EVENT DATE: 20140401
